FAERS Safety Report 12417410 (Version 1)
Quarter: 2016Q2

REPORT INFORMATION
  Report Type: Spontaneous
  Country: IE (occurrence: IE)
  Receive Date: 20160530
  Receipt Date: 20160530
  Transmission Date: 20160815
  Serious: Yes (Other)
  Sender: FDA-Public Use
  Company Number: IE-JNJFOC-20140218059

PATIENT
  Age: 44 Year
  Sex: Female
  Weight: 92.2 kg

DRUGS (1)
  1. REMICADE [Suspect]
     Active Substance: INFLIXIMAB
     Indication: CROHN^S DISEASE
     Route: 042
     Dates: start: 20111213, end: 20130813

REACTIONS (3)
  - Double stranded DNA antibody [Recovered/Resolved]
  - Arthropathy [Recovering/Resolving]
  - Lupus-like syndrome [Unknown]

NARRATIVE: CASE EVENT DATE: 20130718
